FAERS Safety Report 18344050 (Version 4)
Quarter: 2021Q3

REPORT INFORMATION
  Report Type: Spontaneous
  Country: FR (occurrence: FR)
  Receive Date: 20201005
  Receipt Date: 20210713
  Transmission Date: 20211014
  Serious: Yes (Other)
  Sender: FDA-Public Use
  Company Number: FR-MYLANLABS-2020M1083020

PATIENT
  Age: 42 Year
  Sex: Female

DRUGS (15)
  1. METYRAPONE [Suspect]
     Active Substance: METYRAPONE
     Indication: PITUITARY CANCER METASTATIC
     Dosage: 1000?3000 MG/DAY
     Route: 065
     Dates: start: 201508, end: 201812
  2. KETOCONAZOLE. [Concomitant]
     Active Substance: KETOCONAZOLE
     Indication: HYPERADRENOCORTICISM
     Dosage: STARTED PRIOR TO BIOCHEMICAL REMISSION INDUCED BY
     Route: 065
  3. TEMOZOLOMIDE. [Suspect]
     Active Substance: TEMOZOLOMIDE
     Indication: PITUITARY CANCER METASTATIC
     Dosage: 250 MG, QD 5 DAYS EVERY 5 WEEKS
     Dates: start: 20130528, end: 20130910
  4. TEMOZOLOMIDE. [Suspect]
     Active Substance: TEMOZOLOMIDE
     Indication: PITUITARY TUMOUR
     Dosage: UNK(10 CYCLES, 250?270 MG/DAY, 5 DAYS EVERY 4 TO 5 WEEKS)
     Dates: start: 20090728, end: 20100720
  5. TEMOZOLOMIDE. [Suspect]
     Active Substance: TEMOZOLOMIDE
     Dosage: 250MG/DAY FOR 5 DAYS REPEATED EVERY 5 WEEKS;
     Route: 065
     Dates: start: 2013, end: 2013
  6. HYDROXYUREA. [Suspect]
     Active Substance: HYDROXYUREA
     Indication: PITUITARY CANCER METASTATIC
     Dosage: 1500 MILLIGRAM, QD
     Route: 065
     Dates: start: 2016, end: 2017
  7. CABERGOLINE. [Suspect]
     Active Substance: CABERGOLINE
     Indication: PITUITARY CANCER METASTATIC
     Dosage: 2 MILLIGRAM, QW
     Route: 065
     Dates: start: 2015, end: 2016
  8. MITOTANE [Suspect]
     Active Substance: MITOTANE
     Indication: HYPERADRENOCORTICISM
     Dosage: STARTED PRIOR TO BIOCHEMICAL REMISSION INDUCED BY
     Route: 065
     Dates: start: 201702
  9. TEMOZOLOMIDE. [Suspect]
     Active Substance: TEMOZOLOMIDE
     Dosage: 250 MG, QD 5 DAYS EVERY 5 WEEKS
     Dates: start: 2013
  10. PASIREOTIDE. [Suspect]
     Active Substance: PASIREOTIDE
     Indication: PITUITARY CANCER METASTATIC
     Dosage: 0.9 MILLIGRAM, BID
     Route: 065
     Dates: start: 2015, end: 2015
  11. TEMOZOLOMIDE. [Suspect]
     Active Substance: TEMOZOLOMIDE
     Dosage: 250?270 MG/DAY FOR 5 DAYS EVERY 4?5 WEEKS; RECEIVED
     Route: 065
     Dates: start: 2009, end: 2010
  12. IPILIMUMAB [Suspect]
     Active Substance: IPILIMUMAB
     Indication: PITUITARY CANCER METASTATIC
     Dosage: 1 MILLIGRAM/KILOGRAM, 3XW, RECEIVED 5 CYCLES
     Route: 065
     Dates: start: 201902, end: 201905
  13. NIVOLUMAB [Suspect]
     Active Substance: NIVOLUMAB
     Indication: PITUITARY CANCER METASTATIC
     Dosage: 3 MILLIGRAM/KILOGRAM, 3XW, RECEIVED 5 CYCLES WITH IPILIMUMAB
     Route: 065
     Dates: start: 201902, end: 201905
  14. NIVOLUMAB [Suspect]
     Active Substance: NIVOLUMAB
     Dosage: RECEIVED 21 CYCLES OF MONOTHERAPY
     Route: 065
     Dates: start: 201905
  15. MITOTANE [Suspect]
     Active Substance: MITOTANE
     Indication: PITUITARY CANCER METASTATIC

REACTIONS (16)
  - Drug ineffective [Unknown]
  - Alopecia [Unknown]
  - Disease progression [Unknown]
  - Vertigo [Unknown]
  - Malignant neoplasm progression [Unknown]
  - Hirsutism [Unknown]
  - Decreased appetite [Unknown]
  - Asthenia [Unknown]
  - Pituitary tumour [Unknown]
  - Pancytopenia [Unknown]
  - Off label use [Unknown]
  - Thrombocytopenia [Unknown]
  - Weight decreased [Unknown]
  - Product use in unapproved indication [Unknown]
  - Inappropriate schedule of product administration [Unknown]
  - Abdominal pain [Unknown]

NARRATIVE: CASE EVENT DATE: 20090728
